FAERS Safety Report 18492222 (Version 1)
Quarter: 2020Q4

REPORT INFORMATION
  Report Type: Report from Study
  Country: US (occurrence: US)
  Receive Date: 20201111
  Receipt Date: 20201111
  Transmission Date: 20210114
  Serious: Yes (Hospitalization)
  Sender: FDA-Public Use
  Company Number: US-BEIGENE AUS PTY LTD-BGN-2019-001634

PATIENT

DRUGS (16)
  1. ZANDELISIB. [Suspect]
     Active Substance: ZANDELISIB
     Indication: B-CELL LYMPHOMA
     Dosage: 60 MILLIGRAM, 1X / DAY
     Route: 048
     Dates: start: 20190701, end: 20190901
  2. MAGNESIUM AMINO ACID CHELATE [Concomitant]
     Active Substance: MAGNESIUM
     Indication: PROPHYLAXIS
     Dosage: 1 DOSAGE FORM, QD
     Route: 048
     Dates: start: 20190528
  3. PANTOPRAZOLE [Concomitant]
     Active Substance: PANTOPRAZOLE
     Indication: GASTROOESOPHAGEAL REFLUX DISEASE
     Dosage: 40 MILLIGRAM, QD
     Route: 048
     Dates: start: 20190910
  4. ZANDELISIB. [Suspect]
     Active Substance: ZANDELISIB
     Dosage: 60 MILLIGRAM, QD
     Route: 048
     Dates: start: 20191003
  5. VITAMIN C ACID [Concomitant]
     Active Substance: ASCORBIC ACID
     Indication: PROPHYLAXIS
     Dosage: 500 MILLIGRAM, QD
     Route: 048
     Dates: start: 20190920
  6. ZOFRAN [Concomitant]
     Active Substance: ONDANSETRON HYDROCHLORIDE
     Indication: NAUSEA
     Dosage: 8 MILLIGRAM, TID
     Route: 048
     Dates: start: 20190708, end: 20190913
  7. ACYCLOVIR SODIUM. [Concomitant]
     Active Substance: ACYCLOVIR SODIUM
     Indication: ANTIVIRAL PROPHYLAXIS
     Dosage: 400 MILLIGRAM, BID
     Route: 048
     Dates: start: 20190701
  8. DILTIAZEM ^STADA^ [Concomitant]
     Indication: ATRIAL FIBRILLATION
     Dosage: 5 MILLIGRAM, SINGLE DOSE
     Route: 041
     Dates: start: 20190914, end: 20190914
  9. METOPROLOL. [Concomitant]
     Active Substance: METOPROLOL
     Indication: ATRIAL FIBRILLATION
     Dosage: 5 MILLIGRAM, 2 DOSES
     Route: 041
     Dates: start: 20190914, end: 20190914
  10. CENTRUM A TO ZINC [Concomitant]
     Active Substance: MINERALS\VITAMINS
     Indication: PROPHYLAXIS
     Dosage: 1 DOSAGE FORM, QD
     Route: 048
     Dates: start: 20190920
  11. BACTRIM [Concomitant]
     Active Substance: SULFAMETHOXAZOLE\TRIMETHOPRIM
     Indication: ANTIBIOTIC PROPHYLAXIS
     Dosage: 800 MILLIGRAM, 3 TIMES/WK
     Route: 048
     Dates: start: 20190701
  12. VITAMIN D3 [Concomitant]
     Active Substance: CHOLECALCIFEROL
     Indication: PROPHYLAXIS
     Dosage: 25 MICROGRAM, QD
     Route: 048
     Dates: start: 20190920
  13. ZANUBRUTINIB [Suspect]
     Active Substance: ZANUBRUTINIB
     Indication: B-CELL LYMPHOMA
     Dosage: 160 MILLIGRAM, 2X / DAY
     Route: 048
     Dates: start: 20190701, end: 20190906
  14. ZANUBRUTINIB [Suspect]
     Active Substance: ZANUBRUTINIB
     Dosage: 80 MILLIGRAM, QD
     Route: 048
     Dates: start: 20191003
  15. TURMERIC [Concomitant]
     Active Substance: HERBALS\TURMERIC
     Indication: PROPHYLAXIS
     Dosage: 500 MILLIGRAM, QD
     Route: 048
     Dates: start: 20190528
  16. IBUPROFEN. [Concomitant]
     Active Substance: IBUPROFEN
     Indication: ARTHRALGIA
     Dosage: 400 MILLIGRAM, Q6H
     Route: 048
     Dates: start: 20190729

REACTIONS (1)
  - Cytomegalovirus colitis [Recovered/Resolved]

NARRATIVE: CASE EVENT DATE: 20190909
